FAERS Safety Report 12199173 (Version 1)
Quarter: 2016Q1

REPORT INFORMATION
  Report Type: Spontaneous
  Country: FR (occurrence: FR)
  Receive Date: 20160322
  Receipt Date: 20160322
  Transmission Date: 20160526
  Serious: Yes (Hospitalization)
  Sender: FDA-Public Use
  Company Number: FR-GE HEALTHCARE MEDICAL DIAGNOSTICS-VISP-PR-1603S-0150

PATIENT
  Age: 73 Year
  Sex: Male

DRUGS (17)
  1. MOVICOL [Concomitant]
     Active Substance: POLYETHYLENE GLYCOL 3350\POTASSIUM CHLORIDE\SODIUM BICARBONATE\SODIUM CHLORIDE
  2. MECIR [Concomitant]
     Active Substance: TAMSULOSIN HYDROCHLORIDE
  3. AMLODIPINE [Concomitant]
     Active Substance: AMLODIPINE BESYLATE
  4. INEXIUM [Concomitant]
     Active Substance: ESOMEPRAZOLE
  5. AVODART [Concomitant]
     Active Substance: DUTASTERIDE
  6. BISOPROLOL [Concomitant]
     Active Substance: BISOPROLOL
  7. INSULIN [Concomitant]
     Active Substance: INSULIN NOS
  8. VISIPAQUE [Suspect]
     Active Substance: IODIXANOL
     Indication: DIAGNOSTIC PROCEDURE
  9. HYPERIUM [Concomitant]
     Active Substance: RILMENIDINE PHOSPHATE
  10. HEPARIN SODIUM. [Concomitant]
     Active Substance: HEPARIN SODIUM
  11. VISIPAQUE [Suspect]
     Active Substance: IODIXANOL
     Indication: CARDIAC FAILURE
     Dosage: DOSE NOT REPORTED
     Route: 042
     Dates: start: 20160205, end: 20160205
  12. DOLIPRANE [Concomitant]
     Active Substance: ACETAMINOPHEN
  13. ASPIRIN PROTECT [Concomitant]
     Active Substance: ASPIRIN
  14. VENLAFAXINE [Concomitant]
     Active Substance: VENLAFAXINE HYDROCHLORIDE
  15. EUPRESSYL [Concomitant]
     Active Substance: URAPIDIL
  16. ZYMED [Concomitant]
  17. LASILIX [Concomitant]
     Active Substance: FUROSEMIDE

REACTIONS (3)
  - Acute kidney injury [Recovered/Resolved]
  - Renal tubular necrosis [Recovered/Resolved]
  - Anuria [Recovered/Resolved]

NARRATIVE: CASE EVENT DATE: 20160209
